FAERS Safety Report 13990281 (Version 1)
Quarter: 2017Q3

REPORT INFORMATION
  Report Type: Spontaneous
  Country: GB (occurrence: GB)
  Receive Date: 20170920
  Receipt Date: 20170920
  Transmission Date: 20171128
  Serious: Yes (Other)
  Sender: FDA-Public Use
  Company Number: GB-GLAXOSMITHKLINE-GB2017GSK128891

PATIENT
  Age: 13 Month
  Sex: Male

DRUGS (4)
  1. TROBALT [Suspect]
     Active Substance: EZOGABINE
     Indication: EPILEPSY
     Dosage: 12.5 MG, TID
     Dates: start: 201706
  2. TROBALT [Suspect]
     Active Substance: EZOGABINE
     Dosage: 25 MG, TID
  3. TROBALT [Suspect]
     Active Substance: EZOGABINE
     Dosage: 50MG TABLETS, CRUSHED AND ADDED TO FOOD APPROX. 17MG/KG/DAY
  4. CARBAMAZEPINE. [Concomitant]
     Active Substance: CARBAMAZEPINE
     Indication: EPILEPSY
     Dosage: UNK

REACTIONS (4)
  - Off label use [Unknown]
  - Drug administered to patient of inappropriate age [Unknown]
  - Wrong technique in product usage process [Unknown]
  - Seizure [Recovered/Resolved]
